FAERS Safety Report 4641313-8 (Version None)
Quarter: 2005Q2

REPORT INFORMATION
  Report Type: 
  Country: None (occurrence: None)
  Receive Date: 20050419
  Receipt Date: 20050407
  Transmission Date: 20051028
  Serious: Yes (Hospitalization)
  Sender: FDA-Public Use
  Company Number: 05P-028-0296871-00

PATIENT
  Age: 39 Year
  Sex: Female

DRUGS (11)
  1. NORVIR [Suspect]
     Indication: HIV INFECTION
     Dosage: 100 MG, 1 IN 1 D, ORAL
     Route: 048
     Dates: start: 20030905, end: 20031120
  2. ATAZANVIR [Suspect]
     Indication: HIV INFECTION
     Dosage: 300 MG, 1 IN 1 D, ORAL
     Route: 048
     Dates: start: 20030905, end: 20031120
  3. DIDANOSINE [Suspect]
     Indication: HIV INFECTION
     Dosage: 400 MG, 1 IN 1 D
     Dates: start: 20030905, end: 20031120
  4. LAMIVUDINE [Suspect]
     Indication: HIV INFECTION
     Dosage: 300 MG, 1 IN 1 D, ORAL
     Route: 048
     Dates: start: 20030905, end: 20031120
  5. CELECOXIB [Suspect]
     Dosage: 100 MG, 2 IN 1 D
     Dates: start: 20030922, end: 20031120
  6. CYCLOBENZAPRINE HCL [Suspect]
     Dosage: 10 MG, AT SLEEP
     Dates: start: 20030920
  7. EFAVIRENZ [Suspect]
     Dosage: 600 MG, AT SLEEP
     Dates: start: 20031211, end: 20040402
  8. SUSTIVA [Concomitant]
  9. VALGANCICLOVIR [Concomitant]
  10. TENOFOVIR [Concomitant]
  11. KALETRA [Concomitant]

REACTIONS (9)
  - CHOLELITHIASIS [None]
  - FATIGUE [None]
  - GRANULOMA [None]
  - HEPATITIS [None]
  - IMMUNE RECONSTITUTION SYNDROME [None]
  - MYCOBACTERIUM AVIUM COMPLEX INFECTION [None]
  - NECROTISING GRANULOMATOUS LYMPHADENITIS [None]
  - PERIARTHRITIS [None]
  - ROSACEA [None]
